FAERS Safety Report 19185954 (Version 1)
Quarter: 2021Q2

REPORT INFORMATION
  Report Type: Report from Study
  Country: IT (occurrence: IT)
  Receive Date: 20210427
  Receipt Date: 20210427
  Transmission Date: 20210717
  Serious: Yes (Other)
  Sender: FDA-Public Use
  Company Number: IT-GILEAD-2021-0526718

PATIENT
  Age: 38 Year
  Sex: Female

DRUGS (3)
  1. BICTEGRAVIR W/EMTRICITABINE/TENOFOVIR ALAFENAMIDE [Suspect]
     Active Substance: BICTEGRAVIR\EMTRICITABINE\TENOFOVIR ALAFENAMIDE
     Indication: HIV INFECTION
     Dosage: 1 DOSAGE FORM, QD
     Route: 048
     Dates: start: 20200928, end: 20210329
  2. DIBASE [Concomitant]
     Active Substance: CHOLECALCIFEROL
     Dosage: 10.000 U.I./ML
  3. OMEPRAZOLE [OMEPRAZOLE MAGNESIUM] [Concomitant]
     Active Substance: OMEPRAZOLE MAGNESIUM

REACTIONS (4)
  - Depression [Unknown]
  - Malaise [Unknown]
  - Agitation [Unknown]
  - Anxiety [Unknown]

NARRATIVE: CASE EVENT DATE: 20200928
